FAERS Safety Report 8264987-1 (Version None)
Quarter: 2012Q2

REPORT INFORMATION
  Report Type: 
  Country: None (occurrence: None)
  Receive Date: 20120406
  Receipt Date: 20120402
  Transmission Date: 20120825
  Serious: Yes (Other)
  Sender: FDA-Public Use
  Company Number: US-ABBOTT-12P-163-0920488-00

PATIENT
  Age: 16 Year
  Sex: Female

DRUGS (1)
  1. ERYTHROMYCIN [Suspect]
     Indication: PRODUCT USED FOR UNKNOWN INDICATION
     Dosage: 500 MG DAILY
     Route: 048
     Dates: start: 20110101

REACTIONS (3)
  - MUSCULOSKELETAL PAIN [None]
  - PERICARDITIS [None]
  - CHEST PAIN [None]
